FAERS Safety Report 12328092 (Version 1)
Quarter: 2016Q2

REPORT INFORMATION
  Report Type: Spontaneous
  Country: US (occurrence: US)
  Receive Date: 20160503
  Receipt Date: 20160503
  Transmission Date: 20160815
  Serious: No
  Sender: FDA-Public Use
  Company Number: US-IMPAX LABORATORIES, INC-2016-IPXL-00263

PATIENT
  Sex: Female
  Weight: 49 kg

DRUGS (7)
  1. AMANTADINE [Concomitant]
     Active Substance: AMANTADINE
     Indication: PARKINSON^S DISEASE
     Dosage: UNK
     Route: 065
  2. VITAMIN C [Concomitant]
     Active Substance: ASCORBIC ACID
     Indication: VITAMIN SUPPLEMENTATION
     Dosage: UNK
     Route: 065
  3. RYTARY [Suspect]
     Active Substance: CARBIDOPA\LEVODOPA
     Indication: PARKINSON^S DISEASE
     Dosage: 1 CAPSULE, 7/DAY
     Route: 048
  4. VITAMIN D [Concomitant]
     Active Substance: CHOLECALCIFEROL
     Indication: VITAMIN SUPPLEMENTATION
     Dosage: UNK
     Route: 065
  5. CENTRUM SILVER [Concomitant]
     Active Substance: MINERALS\VITAMINS
     Indication: VITAMIN SUPPLEMENTATION
     Dosage: UNK
     Route: 065
  6. ICAPS [Concomitant]
     Active Substance: MINERALS\VITAMINS
     Indication: VITAMIN SUPPLEMENTATION
     Dosage: UNK
     Route: 065
  7. ENTACAPONE. [Concomitant]
     Active Substance: ENTACAPONE
     Indication: PARKINSON^S DISEASE
     Dosage: UNK
     Route: 065

REACTIONS (3)
  - Foreign body [Unknown]
  - Product difficult to swallow [Unknown]
  - Underdose [Unknown]
